FAERS Safety Report 8621410-2 (Version None)
Quarter: 2012Q3

REPORT INFORMATION
  Report Type: 
  Country: None (occurrence: None)
  Receive Date: 20120824
  Receipt Date: 20120822
  Transmission Date: 20120928
  Serious: No
  Sender: FDA-Public Use
  Company Number: US-PFIZER INC-2012207346

PATIENT
  Age: 34 Year
  Sex: Male

DRUGS (1)
  1. LYRICA [Suspect]
     Indication: CONVULSION
     Dosage: 200 MG, 2X/DAY
     Dates: start: 20120628

REACTIONS (2)
  - TREATMENT NONCOMPLIANCE [None]
  - DIARRHOEA [None]
